FAERS Safety Report 21120683 (Version 1)
Quarter: 2022Q3

REPORT INFORMATION
  Report Type: Report from Study
  Country: US (occurrence: None)
  Receive Date: 20220722
  Receipt Date: 20220722
  Transmission Date: 20221027
  Serious: Yes (Hospitalization)
  Sender: FDA-Public Use
  Company Number: US-NESTLEHEALTHSCIENCE-2022000088

PATIENT
  Age: 71 Year
  Sex: Female

DRUGS (1)
  1. ZENPEP [Suspect]
     Active Substance: PANCRELIPASE AMYLASE\PANCRELIPASE LIPASE\PANCRELIPASE PROTEASE
     Indication: Pancreatic failure
     Dosage: PRESCRIBED 2 CAP WITH EVERY MEAL. FOR 3 WEEKS BEEN TAKING 1 CAPSULE EVERY MEAL.

REACTIONS (3)
  - Hospitalisation [Recovered/Resolved]
  - Intentional product use issue [Unknown]
  - Fatigue [Unknown]

NARRATIVE: CASE EVENT DATE: 20220601
